FAERS Safety Report 21139304 (Version 1)
Quarter: 2022Q3

REPORT INFORMATION
  Report Type: Spontaneous
  Country: CN (occurrence: CN)
  Receive Date: 20220727
  Receipt Date: 20220727
  Transmission Date: 20221027
  Serious: Yes (Hospitalization, Other)
  Sender: FDA-Public Use
  Company Number: CN-FreseniusKabi-FK202210321

PATIENT
  Age: 17 Year
  Sex: Female
  Weight: 57.00 kg

DRUGS (4)
  1. PROPOFOL [Suspect]
     Active Substance: PROPOFOL
     Indication: Abortion induced
     Dosage: FORM OF ADMIN. REPORTED AS INJECTION.
     Route: 042
     Dates: start: 20220718, end: 20220718
  2. PROPOFOL [Suspect]
     Active Substance: PROPOFOL
     Indication: General anaesthesia
  3. FENTANYL CITRATE [Concomitant]
     Active Substance: FENTANYL CITRATE
     Indication: Abortion induced
     Dosage: FORM OF ADMIN: INJECTION
     Route: 042
     Dates: start: 20220718, end: 20220718
  4. FENTANYL CITRATE [Concomitant]
     Active Substance: FENTANYL CITRATE
     Indication: General anaesthesia

REACTIONS (4)
  - Epilepsy [Recovering/Resolving]
  - Seizure [Recovering/Resolving]
  - Opisthotonus [Recovering/Resolving]
  - Tachypnoea [Recovering/Resolving]

NARRATIVE: CASE EVENT DATE: 20220718
